FAERS Safety Report 9880305 (Version 1)
Quarter: 2014Q1

REPORT INFORMATION
  Report Type: Report from Study
  Country: US (occurrence: US)
  Receive Date: 20140207
  Receipt Date: 20140207
  Transmission Date: 20141002
  Serious: Yes (Other)
  Sender: FDA-Public Use
  Company Number: US-ROCHE-1343381

PATIENT
  Sex: 0

DRUGS (2)
  1. RITUXIMAB [Suspect]
     Indication: MULTIPLE SCLEROSIS
     Route: 065
  2. RITUXIMAB [Suspect]
     Indication: NEUROMYELITIS OPTICA

REACTIONS (4)
  - CD4 lymphocytes decreased [Unknown]
  - Urinary tract infection [Unknown]
  - Sinusitis [Unknown]
  - CD8 lymphocytes decreased [Unknown]
